FAERS Safety Report 7949767-6 (Version None)
Quarter: 2011Q4

REPORT INFORMATION
  Report Type: 
  Country: None (occurrence: None)
  Receive Date: 20111130
  Receipt Date: 20111129
  Transmission Date: 20120403
  Serious: Yes (Death, Hospitalization)
  Sender: FDA-Public Use
  Company Number: PHHY2011NL81472

PATIENT
  Sex: Male

DRUGS (1)
  1. ZOMETA [Suspect]
     Indication: LUNG CANCER METASTATIC
     Dosage: 4 MG/5ML
     Route: 042
     Dates: start: 20110909

REACTIONS (9)
  - DYSPNOEA [None]
  - FATIGUE [None]
  - INFLAMMATORY MARKER INCREASED [None]
  - NON-SMALL CELL LUNG CANCER STAGE IV [None]
  - PNEUMONIA [None]
  - COUGH [None]
  - GENERAL PHYSICAL HEALTH DETERIORATION [None]
  - NEOPLASM MALIGNANT [None]
  - THINKING ABNORMAL [None]
